FAERS Safety Report 5068094-0 (Version None)
Quarter: 2006Q3

REPORT INFORMATION
  Report Type: 
  Country: None (occurrence: None)
  Receive Date: 20060731
  Receipt Date: 20060713
  Transmission Date: 20061208
  Serious: Yes (Other)
  Sender: FDA-Public Use
  Company Number: US-2006-019201

PATIENT
  Age: 71 Year
  Sex: Female

DRUGS (1)
  1. BETASERON [Suspect]
     Indication: MULTIPLE SCLEROSIS
     Dosage: 8 MIU, EVERY 2D, SUBCUTANEOUS
     Route: 058
     Dates: start: 20050525

REACTIONS (5)
  - ANAEMIA [None]
  - BLOOD POTASSIUM INCREASED [None]
  - FATIGUE [None]
  - HEART RATE IRREGULAR [None]
  - RENAL DISORDER [None]
